FAERS Safety Report 13793944 (Version 4)
Quarter: 2018Q4

REPORT INFORMATION
  Report Type: Spontaneous
  Country: US (occurrence: US)
  Receive Date: 20170726
  Receipt Date: 20181106
  Transmission Date: 20190204
  Serious: Yes (Life-Threatening, Hospitalization, Other)
  Sender: FDA-Public Use
  Company Number: US-CONCORDIA PHARMACEUTICALS INC.-E2B_00008269

PATIENT
  Age: 72 Year
  Sex: Male
  Weight: 68 kg

DRUGS (8)
  1. LISINOPRIL. [Suspect]
     Active Substance: LISINOPRIL
  2. DIGOXIN. [Suspect]
     Active Substance: DIGOXIN
  3. METOPROLOL. [Suspect]
     Active Substance: METOPROLOL
  4. TURMERIC [Suspect]
     Active Substance: HERBALS\TURMERIC
  5. FENTANYL. [Suspect]
     Active Substance: FENTANYL
     Dosage: 2 DOSES ADMINISTERED THREE MINUTES APART
     Route: 042
  6. RIVAROXABAN [Suspect]
     Active Substance: RIVAROXABAN
  7. ACICLOVIR [Suspect]
     Active Substance: ACYCLOVIR
     Indication: HERPES ZOSTER
  8. FLUOXETINE [Suspect]
     Active Substance: FLUOXETINE HYDROCHLORIDE

REACTIONS (3)
  - Serotonin syndrome [Recovered/Resolved]
  - Myoclonus [Recovered/Resolved]
  - Toxicity to various agents [Recovered/Resolved]
